FAERS Safety Report 8479433-2 (Version None)
Quarter: 2012Q2

REPORT INFORMATION
  Report Type: 
  Country: None (occurrence: None)
  Receive Date: 20120629
  Receipt Date: 20120619
  Transmission Date: 20120825
  Serious: Yes (Other)
  Sender: FDA-Public Use
  Company Number: NL-BRISTOL-MYERS SQUIBB COMPANY-16699480

PATIENT
  Age: 45 Year
  Sex: Female

DRUGS (1)
  1. MITOTANE [Suspect]
     Indication: CUSHING'S SYNDROME
     Dosage: DOSE REDUCED TO 1G DAILY FROM AUG1985-JAN1986 DOSE INCR TO 3G DAILY
     Dates: start: 19801101

REACTIONS (2)
  - DEPRESSED LEVEL OF CONSCIOUSNESS [None]
  - GASTROINTESTINAL DISORDER [None]
